FAERS Safety Report 7348133-4 (Version None)
Quarter: 2011Q1

REPORT INFORMATION
  Report Type: 
  Country: None (occurrence: None)
  Receive Date: 20110311
  Receipt Date: 20110125
  Transmission Date: 20110831
  Serious: Yes (Death)
  Sender: FDA-Public Use
  Company Number: US-TYCO HEALTHCARE/MALLINCKRODT-T201100502

PATIENT
  Age: 43 Year
  Sex: Male

DRUGS (1)
  1. DEXTROAMPETAMINE SULFATE TAB [Suspect]
     Dosage: 15-20 TABLETS

REACTIONS (4)
  - HAEMORRHAGE INTRACRANIAL [None]
  - DRUG DIVERSION [None]
  - BRAIN DEATH [None]
  - COMPLETED SUICIDE [None]
